FAERS Safety Report 24892929 (Version 3)
Quarter: 2025Q1

REPORT INFORMATION
  Report Type: Report from Study
  Country: CA (occurrence: CA)
  Receive Date: 20250128
  Receipt Date: 20250320
  Transmission Date: 20250409
  Serious: Yes (Other)
  Sender: TAKEDA
  Company Number: CA-TAKEDA-2025TUS007370

PATIENT
  Sex: Female

DRUGS (4)
  1. VEDOLIZUMAB [Suspect]
     Active Substance: VEDOLIZUMAB
     Indication: Colitis ulcerative
  2. CALCIUM [Concomitant]
     Active Substance: CALCIUM
     Indication: Supplementation therapy
  3. PREDNISONE [Concomitant]
     Active Substance: PREDNISONE
  4. ALENDRONATE SODIUM [Concomitant]
     Active Substance: ALENDRONATE SODIUM

REACTIONS (6)
  - Colitis ulcerative [Unknown]
  - Clostridium difficile infection [Unknown]
  - Iritis [Unknown]
  - Food intolerance [Unknown]
  - Irritable bowel syndrome [Unknown]
  - Anal fissure haemorrhage [Unknown]
